FAERS Safety Report 9927784 (Version 2)
Quarter: 2015Q4

REPORT INFORMATION
  Report Type: Report from Study
  Country: US (occurrence: US)
  Receive Date: 20140227
  Receipt Date: 20151110
  Transmission Date: 20160305
  Serious: Yes (Other)
  Sender: FDA-Public Use
  Company Number: US-ROCHE-1330390

PATIENT
  Sex: Female

DRUGS (11)
  1. LUCENTIS [Suspect]
     Active Substance: RANIBIZUMAB
     Indication: RETINAL VEIN OCCLUSION
  2. LUCENTIS [Suspect]
     Active Substance: RANIBIZUMAB
     Indication: RETINAL OEDEMA
     Route: 050
  3. ALPHAGAN P [Concomitant]
     Active Substance: BRIMONIDINE TARTRATE
     Dosage: 1 DROP BID RIGHT EYE
     Route: 065
  4. METFORMIN [Concomitant]
     Active Substance: METFORMIN HYDROCHLORIDE
     Route: 048
  5. ACETAZOLAMIDE. [Concomitant]
     Active Substance: ACETAZOLAMIDE
     Route: 048
  6. OZURDEX [Concomitant]
     Active Substance: DEXAMETHASONE
  7. AVASTIN [Suspect]
     Active Substance: BEVACIZUMAB
     Indication: PRODUCT USED FOR UNKNOWN INDICATION
     Route: 050
  8. ENALAPRIL MALEATE. [Concomitant]
     Active Substance: ENALAPRIL MALEATE
     Route: 048
  9. GLIMEPIRIDE. [Concomitant]
     Active Substance: GLIMEPIRIDE
     Route: 048
  10. LUMIGAN [Concomitant]
     Active Substance: BIMATOPROST
     Dosage: 1 DROP QHS BOTH EYES
     Route: 065
  11. BETIMOL [Concomitant]
     Active Substance: TIMOLOL
     Dosage: 1 DROP BID RIGHT EYE
     Route: 065

REACTIONS (10)
  - Posterior capsule opacification [Unknown]
  - Retinal detachment [Unknown]
  - Iridocyclitis [Unknown]
  - Eyelid pain [Unknown]
  - Retinal exudates [Unknown]
  - Tunnel vision [Unknown]
  - Cataract [Unknown]
  - Accommodation disorder [Unknown]
  - Intraocular lens implant [Unknown]
  - Macular oedema [Unknown]
